FAERS Safety Report 4623109-6 (Version None)
Quarter: 2005Q1

REPORT INFORMATION
  Report Type: 
  Country: None (occurrence: None)
  Receive Date: 20050328
  Receipt Date: 20050328
  Transmission Date: 20050727
  Serious: Yes (Hospitalization)
  Sender: FDA-Public Use
  Company Number: None

PATIENT
  Age: 71 Year
  Sex: Male
  Weight: 112 kg

DRUGS (12)
  1. PACLITAXEL [Suspect]
     Indication: OESOPHAGEAL CANCER METASTATIC
     Dosage: 80MG/M2;  200   WEEKLY   INTRAVENOU
     Route: 042
     Dates: start: 20040920, end: 20041019
  2. DECADRON [Concomitant]
  3. RANITIDINE [Concomitant]
  4. DIPHENHYDRAMINE HCL [Concomitant]
  5. LASIX [Concomitant]
  6. VERAPAMIL [Concomitant]
  7. METFORMIN HCL [Concomitant]
  8. ALLOPURINOL [Concomitant]
  9. TERAZOSIN [Concomitant]
  10. ROXICODONE [Concomitant]
  11. ZOFRAN [Concomitant]
  12. COMPAZINE [Concomitant]

REACTIONS (3)
  - INFUSION RELATED REACTION [None]
  - PUPIL FIXED [None]
  - UNRESPONSIVE TO VERBAL STIMULI [None]
